FAERS Safety Report 5835309-8 (Version None)
Quarter: 2008Q3

REPORT INFORMATION
  Report Type: 
  Country: None (occurrence: None)
  Receive Date: 20080806
  Receipt Date: 20080725
  Transmission Date: 20090109
  Serious: Yes (Hospitalization, Other)
  Sender: FDA-Public Use
  Company Number: GB-BRISTOL-MYERS SQUIBB COMPANY-14289128

PATIENT
  Age: 60 Year
  Sex: Male

DRUGS (3)
  1. CYCLOPHOSPHAMIDE [Suspect]
     Indication: VASCULITIS
     Route: 042
     Dates: start: 20070404
  2. ARANESP [Suspect]
     Indication: RENAL FAILURE CHRONIC
     Dosage: INITIALLY ADMINSTERED SUBCUTANEOUSLY, LATER CHANGED TO IV AT AN UNSPECIFIED TIMEPOINT
     Route: 042
     Dates: start: 20061101
  3. VENOFER [Concomitant]
     Route: 042
     Dates: start: 20070301

REACTIONS (5)
  - BONE MARROW FAILURE [None]
  - DRUG HYPERSENSITIVITY [None]
  - DUODENITIS [None]
  - HAEMOGLOBIN DECREASED [None]
  - THERAPEUTIC RESPONSE DECREASED [None]
